FAERS Safety Report 11350408 (Version 4)
Quarter: 2016Q1

REPORT INFORMATION
  Report Type: Report from Study
  Country: CA (occurrence: CA)
  Receive Date: 20150807
  Receipt Date: 20160328
  Transmission Date: 20160525
  Serious: Yes (Hospitalization, Other)
  Sender: FDA-Public Use
  Company Number: PHHY2014CA018498

PATIENT
  Age: 57 Year
  Sex: Female

DRUGS (4)
  1. SANDOSTATIN [Suspect]
     Active Substance: OCTREOTIDE ACETATE
     Indication: GASTROINTESTINAL HYPOMOTILITY
     Dosage: 150 UG, TID
     Route: 058
     Dates: start: 20131220, end: 20140111
  2. SANDOSTATIN LAR DEPOT [Suspect]
     Active Substance: OCTREOTIDE ACETATE
     Indication: GASTROINTESTINAL HYPOMOTILITY
     Dosage: 30 MG, QMO
     Route: 030
     Dates: start: 20140110
  3. PROLIA [Concomitant]
     Active Substance: DENOSUMAB
     Indication: OSTEOPOROSIS
     Dosage: EVERY 6 MONTHS
     Route: 058
     Dates: start: 20150526
  4. ALENDRONATE [Concomitant]
     Active Substance: ALENDRONATE SODIUM
     Indication: OSTEOPOROSIS
     Route: 065

REACTIONS (28)
  - Tooth abscess [Recovered/Resolved]
  - Throat irritation [Not Recovered/Not Resolved]
  - Abnormal faeces [Unknown]
  - Needle issue [Unknown]
  - Body temperature decreased [Unknown]
  - Flatulence [Unknown]
  - Headache [Unknown]
  - Diarrhoea [Unknown]
  - Asthenia [Recovering/Resolving]
  - Blood pressure diastolic increased [Unknown]
  - Dysphagia [Unknown]
  - Faecal vomiting [Unknown]
  - Rhinorrhoea [Not Recovered/Not Resolved]
  - Nasal congestion [Unknown]
  - Bowel movement irregularity [Unknown]
  - Vomiting [Recovered/Resolved]
  - Vomiting [Recovered/Resolved]
  - Pain [Unknown]
  - Faeces soft [Unknown]
  - Groin pain [Unknown]
  - Nasopharyngitis [Not Recovered/Not Resolved]
  - Diarrhoea [Recovered/Resolved]
  - Nausea [Unknown]
  - Intestinal obstruction [Unknown]
  - Blood pressure increased [Unknown]
  - Sneezing [Not Recovered/Not Resolved]
  - Injection site pain [Unknown]
  - Product use issue [Unknown]

NARRATIVE: CASE EVENT DATE: 20140210
